FAERS Safety Report 7910833 (Version 5)
Quarter: 2013Q1

REPORT INFORMATION
  Report Type: Report from Study
  Country: JP (occurrence: JP)
  Receive Date: 20110422
  Receipt Date: 20130322
  Transmission Date: 20140127
  Serious: Yes (Death, Hospitalization)
  Sender: FDA-Public Use
  Company Number: JP-JNJFOC-20110408183

PATIENT
  Age: 69 Year
  Sex: Female
  Weight: 58 kg

DRUGS (5)
  1. GOLIMUMAB [Suspect]
     Indication: RHEUMATOID ARTHRITIS
     Route: 058
     Dates: start: 20100303, end: 20110221
  2. GOLIMUMAB [Suspect]
     Indication: RHEUMATOID ARTHRITIS
     Route: 058
     Dates: start: 20090225, end: 20100203
  3. AMLODIPINE BESILATE [Concomitant]
     Indication: HYPERTENSION
     Route: 048
     Dates: start: 20090521
  4. OMEPRAZOLE [Concomitant]
     Indication: ABDOMINAL PAIN UPPER
     Route: 048
     Dates: start: 20100304
  5. FELBINAC [Concomitant]
     Indication: RHEUMATOID ARTHRITIS
     Route: 062
     Dates: start: 20100628

REACTIONS (1)
  - Pancreatic carcinoma [Fatal]
